FAERS Safety Report 14305350 (Version 1)
Quarter: 2017Q4

REPORT INFORMATION
  Report Type: Spontaneous
  Country: CZ (occurrence: CZ)
  Receive Date: 20171219
  Receipt Date: 20171219
  Transmission Date: 20180321
  Serious: Yes (Disabling, Other)
  Sender: FDA-Public Use
  Company Number: CZ-OTSUKA-EU-2012-10015

PATIENT
  Sex: Male

DRUGS (6)
  1. MILGAMMA N [Concomitant]
     Active Substance: BENFOTIAMINE\CYANOCOBALAMIN\PYRIDOXINE HYDROCHLORIDE
     Indication: PRODUCT USED FOR UNKNOWN INDICATION
     Dosage: UNK
     Route: 065
  2. LOKREN [Concomitant]
     Active Substance: BETAXOLOL HYDROCHLORIDE
     Indication: PRODUCT USED FOR UNKNOWN INDICATION
     Dosage: 10, UNK, QD
     Route: 065
  3. BROMAZEPAMUM [Concomitant]
     Indication: PRODUCT USED FOR UNKNOWN INDICATION
     Dosage: 1.5, UNK, QD
     Route: 065
  4. VITAMIN B 1-6-12 [Concomitant]
     Active Substance: CYANOCOBALAMIN\PYRIDOXINE\THIAMINE
     Indication: PRODUCT USED FOR UNKNOWN INDICATION
     Dosage: MILGAMMA N
     Route: 065
  5. AMITRIPTYLINE [Concomitant]
     Active Substance: AMITRIPTYLINE
     Indication: PRODUCT USED FOR UNKNOWN INDICATION
     Dosage: 25 MG, QD
     Route: 065
  6. ABILIFY [Suspect]
     Active Substance: ARIPIPRAZOLE
     Indication: PRODUCT USED FOR UNKNOWN INDICATION
     Dosage: 7.5, SINCE 28.11.2011 DOSAGE INCREASED TO 15MG
     Route: 065
     Dates: start: 20071119, end: 200801

REACTIONS (12)
  - Musculoskeletal stiffness [Recovering/Resolving]
  - Diaphragmatic paralysis [Not Recovered/Not Resolved]
  - Palpitations [Recovering/Resolving]
  - Dyspnoea [Recovering/Resolving]
  - Dysphagia [Recovering/Resolving]
  - Oropharyngeal pain [Recovering/Resolving]
  - Erectile dysfunction [Recovering/Resolving]
  - Myoclonus [Recovering/Resolving]
  - Speech disorder [Recovering/Resolving]
  - Urinary incontinence [Recovering/Resolving]
  - Hyperhidrosis [Recovering/Resolving]
  - Salivary hypersecretion [Recovering/Resolving]
